FAERS Safety Report 7610584-8 (Version None)
Quarter: 2011Q3

REPORT INFORMATION
  Report Type: 
  Country: None (occurrence: None)
  Receive Date: 20110715
  Receipt Date: 20110708
  Transmission Date: 20111222
  Serious: Yes (Death, Other)
  Sender: FDA-Public Use
  Company Number: FR-CELGENEUS-056-21880-11070674

PATIENT

DRUGS (10)
  1. REVLIMID [Suspect]
     Route: 048
  2. DEXAMETHASONE [Concomitant]
     Route: 065
  3. PREDNISONE [Concomitant]
     Route: 065
  4. MELPHALAN HYDROCHLORIDE [Concomitant]
     Route: 065
  5. BORTEZOMIB [Concomitant]
     Route: 065
  6. ENOXAPARIN [Concomitant]
     Indication: PROPHYLAXIS
     Route: 065
  7. ASPIRIN [Concomitant]
     Indication: PROPHYLAXIS
     Route: 065
  8. VITAMIN K ANTAGONISTS [Concomitant]
     Indication: PROPHYLAXIS
     Route: 065
  9. LMWH [Concomitant]
     Indication: PROPHYLAXIS
     Route: 065
  10. THALIDOMIDE [Suspect]
     Route: 048

REACTIONS (8)
  - SEPSIS [None]
  - MULTIPLE MYELOMA [None]
  - NEUTROPENIA [None]
  - HAEMORRHAGE [None]
  - EMBOLISM [None]
  - VENOUS THROMBOSIS [None]
  - PULMONARY EMBOLISM [None]
  - THROMBOCYTOPENIA [None]
